FAERS Safety Report 7397882-0 (Version None)
Quarter: 2011Q2

REPORT INFORMATION
  Report Type: 
  Country: None (occurrence: None)
  Receive Date: 20110406
  Receipt Date: 20110330
  Transmission Date: 20111010
  Serious: Yes (Death)
  Sender: FDA-Public Use
  Company Number: US-BAXTER-2011BH005632

PATIENT
  Age: 73 Year
  Sex: Male

DRUGS (3)
  1. FLUDARA [Concomitant]
     Dates: start: 19950101
  2. GAMMAGARD LIQUID [Suspect]
     Indication: HYPOGAMMAGLOBULINAEMIA
     Route: 065
     Dates: start: 20080601, end: 20090901
  3. BENDAMUSTINE [Concomitant]
     Dates: start: 20090512

REACTIONS (1)
  - CHRONIC LYMPHOCYTIC LEUKAEMIA [None]
